FAERS Safety Report 19407033 (Version 1)
Quarter: 2021Q2

REPORT INFORMATION
  Report Type: Spontaneous
  Country: CA (occurrence: CA)
  Receive Date: 20210611
  Receipt Date: 20210611
  Transmission Date: 20210717
  Serious: Yes (Other)
  Sender: FDA-Public Use
  Company Number: CA-ALLERGAN-2122672US

PATIENT
  Sex: Female

DRUGS (5)
  1. HYDROCORTISONE UNK [Suspect]
     Active Substance: HYDROCORTISONE
     Indication: PRODUCT USED FOR UNKNOWN INDICATION
     Dosage: UNK
  2. MEZAVANT [Concomitant]
     Active Substance: MESALAMINE
     Dosage: 1.2 G, QD
  3. CITALOPRAM HYDROBROMIDE UNK [Suspect]
     Active Substance: CITALOPRAM HYDROBROMIDE
     Indication: PRODUCT USED FOR UNKNOWN INDICATION
     Dosage: 10 MG, QD
     Route: 048
  4. PREDNISONE. [Concomitant]
     Active Substance: PREDNISONE
  5. ENTYVIO [Suspect]
     Active Substance: VEDOLIZUMAB
     Indication: COLITIS ULCERATIVE
     Dosage: 300 MG, UNK
     Route: 042

REACTIONS (5)
  - Adverse event [Not Recovered/Not Resolved]
  - Dry skin [Not Recovered/Not Resolved]
  - Rash erythematous [Not Recovered/Not Resolved]
  - Headache [Not Recovered/Not Resolved]
  - Colitis ulcerative [Not Recovered/Not Resolved]
